FAERS Safety Report 22015559 (Version 3)
Quarter: 2023Q2

REPORT INFORMATION
  Report Type: Report from Study
  Country: US (occurrence: US)
  Receive Date: 20230221
  Receipt Date: 20230517
  Transmission Date: 20230721
  Serious: Yes (Hospitalization)
  Sender: FDA-Public Use
  Company Number: US-ASTELLAS-2023US005947

PATIENT
  Age: 81 Year
  Sex: Male

DRUGS (24)
  1. GILTERITINIB [Suspect]
     Active Substance: GILTERITINIB
     Indication: Acute myeloid leukaemia refractory
     Route: 048
     Dates: start: 20221224, end: 20230104
  2. LANRAPLENIB [Suspect]
     Active Substance: LANRAPLENIB
     Indication: Acute myeloid leukaemia refractory
     Route: 048
     Dates: start: 20221223, end: 20230104
  3. TAMSULOSIN [Concomitant]
     Active Substance: TAMSULOSIN
     Indication: Benign prostatic hyperplasia
     Dosage: 0.4 MG, ONCE DAILY
     Route: 065
     Dates: start: 2021
  4. SPIRULINA PLATENSIS [Concomitant]
     Indication: Routine health maintenance
     Route: 065
     Dates: start: 2002
  5. CALCIUM [Concomitant]
     Active Substance: CALCIUM
     Indication: Routine health maintenance
     Route: 065
     Dates: start: 2002
  6. METAMUCIL [Concomitant]
     Active Substance: PLANTAGO SEED
     Indication: Routine health maintenance
     Route: 065
     Dates: start: 2002
  7. VITAMIN A [Concomitant]
     Active Substance: VITAMIN A
     Indication: Routine health maintenance
     Route: 065
     Dates: start: 2002
  8. FISH OIL [Concomitant]
     Active Substance: FISH OIL
     Indication: Routine health maintenance
     Route: 065
     Dates: start: 2002
  9. VITAMIN E [Concomitant]
     Active Substance: .ALPHA.-TOCOPHEROL
     Indication: Routine health maintenance
     Route: 065
     Dates: start: 2002
  10. CENOVIS FOLIC ACID [Concomitant]
     Indication: Routine health maintenance
     Route: 065
     Dates: start: 2002
  11. HERBALS\TURMERIC [Concomitant]
     Active Substance: HERBALS\TURMERIC
     Indication: Routine health maintenance
     Route: 065
     Dates: start: 2002
  12. POTASSIUM [Concomitant]
     Active Substance: POTASSIUM
     Indication: Routine health maintenance
     Route: 065
     Dates: start: 2002
  13. ASPIRIN [Concomitant]
     Active Substance: ASPIRIN
     Indication: Routine health maintenance
     Route: 065
     Dates: start: 2002
  14. VITAMIN D3 [Concomitant]
     Active Substance: CHOLECALCIFEROL
     Indication: Routine health maintenance
     Route: 065
     Dates: start: 2002
  15. VITAMIN B COMPLEX [Concomitant]
     Active Substance: CYANOCOBALAMIN\DEXPANTHENOL\NIACINAMIDE\PYRIDOXINE HYDROCHLORIDE\RIBOFLAVIN 5^-PHOSPHATE SODIUM\THIA
     Indication: Routine health maintenance
     Route: 065
     Dates: start: 2002
  16. DIETARY SUPPLEMENT [Concomitant]
     Active Substance: DIETARY SUPPLEMENT
     Indication: Pain
     Route: 065
     Dates: start: 2002
  17. IRON [Concomitant]
     Active Substance: IRON
     Indication: Fatigue
     Route: 065
     Dates: start: 2002
  18. OLODATEROL HYDROCHLORIDE\TIOTROPIUM BROMIDE MONOHYDRATE [Concomitant]
     Active Substance: OLODATEROL HYDROCHLORIDE\TIOTROPIUM BROMIDE MONOHYDRATE
     Indication: Chronic obstructive pulmonary disease
     Dosage: 2.5 UG 2.5/2.5 MCG, ONCE DAILY
     Route: 065
     Dates: start: 200203
  19. AMLODIPINE BESYLATE [Concomitant]
     Active Substance: AMLODIPINE BESYLATE
     Indication: Hypertension
     Dosage: 5 MG, ONCE DAILY (PM)
     Route: 065
     Dates: start: 2019
  20. Nasal [Concomitant]
     Indication: Rhinitis
     Route: 065
     Dates: start: 2012
  21. LOSARTAN [Concomitant]
     Active Substance: LOSARTAN
     Indication: Hypertension
     Dosage: 100 MG, ONCE DAILY (AM)
     Route: 065
  22. OMEPRAZOLE [Concomitant]
     Active Substance: OMEPRAZOLE
     Indication: Gastrooesophageal reflux disease
     Route: 065
     Dates: start: 2012
  23. CLINDAMYCIN [Concomitant]
     Active Substance: CLINDAMYCIN
     Indication: Rash papular
     Route: 065
     Dates: start: 20221223
  24. ONDANSETRON [Concomitant]
     Active Substance: ONDANSETRON
     Indication: Nausea
     Dosage: 4 MG, OTHER (Q8H PRN)
     Route: 065
     Dates: start: 20221223

REACTIONS (3)
  - Febrile neutropenia [Recovered/Resolved]
  - Streptococcal bacteraemia [Recovered/Resolved]
  - Dyspnoea [Recovered/Resolved]

NARRATIVE: CASE EVENT DATE: 20230104
